FAERS Safety Report 18374112 (Version 5)
Quarter: 2021Q3

REPORT INFORMATION
  Report Type: Spontaneous
  Country: US (occurrence: US)
  Receive Date: 20201013
  Receipt Date: 20210721
  Transmission Date: 20211014
  Serious: Yes (Other)
  Sender: FDA-Public Use
  Company Number: US-SA-2020SA281028

PATIENT
  Age: 30 Year
  Sex: Female

DRUGS (1)
  1. DUPIXENT [Suspect]
     Active Substance: DUPILUMAB
     Indication: DERMATITIS ATOPIC
     Dosage: 300 MG, QOW
     Route: 058
     Dates: start: 20200825

REACTIONS (5)
  - Stillbirth [Unknown]
  - Maternal exposure during pregnancy [Unknown]
  - Sluggishness [Unknown]
  - Injection site pain [Unknown]
  - Injection site dryness [Unknown]

NARRATIVE: CASE EVENT DATE: 2020
